FAERS Safety Report 24428925 (Version 2)
Quarter: 2025Q3

REPORT INFORMATION
  Report Type: Report from Study
  Country: US (occurrence: US)
  Receive Date: 20241011
  Receipt Date: 20250809
  Transmission Date: 20251020
  Serious: Yes (Other)
  Sender: ALEXION PHARMACEUTICALS
  Company Number: US-ALXN-202410USA001671US

PATIENT
  Sex: Female

DRUGS (1)
  1. STRENSIQ [Suspect]
     Active Substance: ASFOTASE ALFA
     Route: 065

REACTIONS (9)
  - Pain [Not Recovered/Not Resolved]
  - Axillary mass [Unknown]
  - Limb mass [Unknown]
  - Arachnoiditis [Unknown]
  - Back pain [Unknown]
  - Neck pain [Unknown]
  - Cutaneous calcification [Unknown]
  - Uterine mass [Unknown]
  - Glycosylated haemoglobin increased [Unknown]
